FAERS Safety Report 4269457-3 (Version None)
Quarter: 2004Q1

REPORT INFORMATION
  Report Type: 
  Country: None (occurrence: None)
  Receive Date: 20040112
  Receipt Date: 20031230
  Transmission Date: 20041129
  Serious: Yes (Hospitalization)
  Sender: FDA-Public Use
  Company Number: HQWYE932230DEC03

PATIENT
  Age: 30 Month
  Sex: Female

DRUGS (3)
  1. CHILDREN'S ADVIL [Suspect]
     Indication: INFLUENZA
     Dosage: 1 DOSE PER WEIGHT THREE TIMES DAILY
     Route: 048
     Dates: start: 20031129, end: 20031203
  2. CHILDREN'S ADVIL [Suspect]
     Indication: PYREXIA
     Dosage: 1 DOSE PER WEIGHT THREE TIMES DAILY
     Route: 048
     Dates: start: 20031129, end: 20031203
  3. PARACETAMOL (PARACETAMOL) [Concomitant]

REACTIONS (8)
  - CIRCULATORY COLLAPSE [None]
  - DIALYSIS [None]
  - GASTROINTESTINAL HAEMORRHAGE [None]
  - HAEMATEMESIS [None]
  - INFECTION [None]
  - RENAL FAILURE ACUTE [None]
  - THROMBOCYTOPENIA [None]
  - UNEVALUABLE EVENT [None]
